FAERS Safety Report 12613709 (Version 1)
Quarter: 2016Q3

REPORT INFORMATION
  Report Type: Spontaneous
  Country: US (occurrence: US)
  Receive Date: 20160802
  Receipt Date: 20160802
  Transmission Date: 20161109
  Serious: Yes (Hospitalization, Other)
  Sender: FDA-Public Use
  Company Number: US-NOVOPROD-503109

PATIENT
  Age: 63 Year
  Sex: Female
  Weight: 69.39 kg

DRUGS (3)
  1. NOVOLIN 70/30 [Suspect]
     Active Substance: INSULIN HUMAN
     Indication: TYPE 2 DIABETES MELLITUS
     Dosage: 20 UNITS BID
     Route: 058
     Dates: start: 2006
  2. BC                                 /00141001/ [Concomitant]
     Indication: HEADACHE
     Dosage: POWDER, UNK, PRN
  3. NOVOLIN 70/30 [Suspect]
     Active Substance: INSULIN HUMAN
     Dosage: 35-37 UNITS BID
     Route: 058

REACTIONS (3)
  - Blood glucose decreased [Recovered/Resolved]
  - Decubitus ulcer [Recovering/Resolving]
  - Injection site bruising [Recovered/Resolved]

NARRATIVE: CASE EVENT DATE: 200911
